FAERS Safety Report 7318509-X (Version None)
Quarter: 2011Q1

REPORT INFORMATION
  Report Type: 
  Country: None (occurrence: None)
  Receive Date: 20110228
  Receipt Date: 20110222
  Transmission Date: 20110831
  Serious: No
  Sender: FDA-Public Use
  Company Number: US-PFIZER INC-2007000026

PATIENT
  Sex: Female
  Weight: 36.281 kg

DRUGS (1)
  1. GENOTROPIN [Suspect]
     Indication: GROWTH HORMONE DEFICIENCY
     Dosage: FREQUENCY: DAILY
     Route: 058
     Dates: start: 20060101

REACTIONS (2)
  - RASH PRURITIC [None]
  - RASH [None]
